FAERS Safety Report 17740067 (Version 1)
Quarter: 2020Q2

REPORT INFORMATION
  Report Type: Spontaneous
  Country: US (occurrence: US)
  Receive Date: 20200503
  Receipt Date: 20200503
  Transmission Date: 20200714
  Serious: No
  Sender: FDA-Public Use
  Company Number: None

PATIENT
  Age: 31 Year
  Sex: Female
  Weight: 65.25 kg

DRUGS (1)
  1. ETONOGESTREL/ETHINYL ESTRADIOL [Suspect]
     Active Substance: ETHINYL ESTRADIOL\ETONOGESTREL
     Indication: CONTRACEPTION
     Dosage: ?          QUANTITY:1 RING;OTHER FREQUENCY:ONCE EVERY 4 WEEKS;?
     Route: 067
     Dates: start: 20200418

REACTIONS (3)
  - Penile discomfort [None]
  - Exposure via partner [None]
  - Pruritus genital [None]

NARRATIVE: CASE EVENT DATE: 20200429
